FAERS Safety Report 4348824-3 (Version None)
Quarter: 2004Q2

REPORT INFORMATION
  Report Type: 
  Country: None (occurrence: None)
  Receive Date: 20040423
  Receipt Date: 20040408
  Transmission Date: 20050107
  Serious: Yes (Hospitalization)
  Sender: FDA-Public Use
  Company Number: MPS1-10187

PATIENT
  Age: 3 Year
  Sex: Male
  Weight: 14.2 kg

DRUGS (1)
  1. ALDURAZYME [Suspect]
     Indication: MUCOPOLYSACCHARIDOSIS
     Dosage: 100 U/KG QWK IV
     Route: 042
     Dates: start: 20031216

REACTIONS (1)
  - LOWER RESPIRATORY TRACT INFECTION [None]
